FAERS Safety Report 16935518 (Version 4)
Quarter: 2020Q3

REPORT INFORMATION
  Report Type: Spontaneous
  Country: US (occurrence: US)
  Receive Date: 20191018
  Receipt Date: 20200715
  Transmission Date: 20201102
  Serious: No
  Sender: FDA-Public Use
  Company Number: US-SA-2019SA288679

PATIENT

DRUGS (1)
  1. DUPIXENT [Suspect]
     Active Substance: DUPILUMAB
     Indication: DERMATITIS ATOPIC
     Dosage: 300 MG, QOW
     Route: 058
     Dates: start: 20190830

REACTIONS (10)
  - Injection site erythema [Unknown]
  - Ocular hyperaemia [Recovered/Resolved]
  - Injection site haemorrhage [Recovered/Resolved]
  - Eye inflammation [Unknown]
  - Injection site pain [Recovered/Resolved]
  - Injection site urticaria [Recovered/Resolved]
  - Swelling of eyelid [Unknown]
  - Eye pruritus [Recovered/Resolved]
  - Dry eye [Unknown]
  - Dry eye [Recovered/Resolved]

NARRATIVE: CASE EVENT DATE: 2019
